FAERS Safety Report 17251399 (Version 1)
Quarter: 2019Q4

REPORT INFORMATION
  Report Type: Spontaneous
  Country: US (occurrence: US)
  Receive Date: 20191216
  Receipt Date: 20191216
  Transmission Date: 20200122
  Serious: Yes (Hospitalization)
  Sender: FDA-Public Use
  Company Number: None

PATIENT
  Sex: Female

DRUGS (9)
  1. VITAMIN D [Concomitant]
     Active Substance: VITAMIN D NOS
  2. PREDNISONE. [Concomitant]
     Active Substance: PREDNISONE
  3. AMOX/CLAV [Concomitant]
     Active Substance: AMOXICILLIN\CLAVULANATE POTASSIUM
  4. MELOXICAN [Concomitant]
     Active Substance: MELOXICAM
  5. ENBREL [Suspect]
     Active Substance: ETANERCEPT
     Indication: PATHOLOGICAL FRACTURE
     Route: 058
     Dates: start: 201703
  6. PROLIA [Suspect]
     Active Substance: DENOSUMAB
     Indication: PATHOLOGICAL FRACTURE
     Route: 058
     Dates: start: 201706
  7. AMLODIPINE [Concomitant]
     Active Substance: AMLODIPINE BESYLATE
  8. METHOTREXATE. [Concomitant]
     Active Substance: METHOTREXATE
  9. SENSIPAR [Concomitant]
     Active Substance: CINACALCET HYDROCHLORIDE

REACTIONS (1)
  - Balance disorder [None]
